FAERS Safety Report 19717689 (Version 1)
Quarter: 2021Q3

REPORT INFORMATION
  Report Type: Spontaneous
  Country: US (occurrence: US)
  Receive Date: 20210818
  Receipt Date: 20210818
  Transmission Date: 20211014
  Serious: No
  Sender: FDA-Public Use
  Company Number: None

PATIENT
  Age: 77 Year
  Sex: Male
  Weight: 94 kg

DRUGS (1)
  1. RITUXIMAB?PVVR (RITUXIMAB?PVVR 10MG/ML INJ, SOLN) [Suspect]
     Active Substance: RITUXIMAB-PVVR
     Indication: MANTLE CELL LYMPHOMA STAGE II
     Route: 042
     Dates: start: 20210104, end: 20210104

REACTIONS (3)
  - Headache [None]
  - Rash [None]
  - Erythema [None]

NARRATIVE: CASE EVENT DATE: 20210104
